FAERS Safety Report 22070411 (Version 12)
Quarter: 2025Q3

REPORT INFORMATION
  Report Type: Report from Study
  Country: US (occurrence: US)
  Receive Date: 20230307
  Receipt Date: 20250828
  Transmission Date: 20251020
  Serious: Yes (Hospitalization, Other)
  Sender: NOVARTIS
  Company Number: US-002147023-NVSC2023US051070

PATIENT
  Sex: Female

DRUGS (2)
  1. KESIMPTA [Suspect]
     Active Substance: OFATUMUMAB
     Indication: Relapsing multiple sclerosis
     Route: 065
     Dates: start: 20230209
  2. GILENYA [Suspect]
     Active Substance: FINGOLIMOD HYDROCHLORIDE
     Indication: Relapsing multiple sclerosis
     Route: 048

REACTIONS (12)
  - Clostridium difficile infection [Unknown]
  - Asthenia [Unknown]
  - Bradycardia [Recovered/Resolved]
  - Multiple sclerosis relapse [Unknown]
  - Neuropathy peripheral [Unknown]
  - Visual impairment [Unknown]
  - Musculoskeletal discomfort [Unknown]
  - Fatigue [Unknown]
  - Gait disturbance [Unknown]
  - Adverse reaction [Recovering/Resolving]
  - Headache [Unknown]
  - Drug ineffective [Unknown]
